FAERS Safety Report 4705174-0 (Version None)
Quarter: 2005Q3

REPORT INFORMATION
  Report Type: 
  Country: None (occurrence: None)
  Receive Date: 20050701
  Receipt Date: 20041228
  Transmission Date: 20060218
  Serious: Yes (Death, Hospitalization)
  Sender: FDA-Public Use
  Company Number: US-MERCK-0412USA03171

PATIENT
  Age: 77 Year
  Sex: Male
  Weight: 80 kg

DRUGS (7)
  1. VIOXX [Suspect]
     Indication: OSTEOARTHRITIS
     Route: 048
     Dates: start: 20000301, end: 20011201
  2. GLUCOPHAGE [Concomitant]
     Indication: DIABETES MELLITUS
     Route: 065
  3. GLUCOTROL [Concomitant]
     Indication: DIABETES MELLITUS
     Route: 065
  4. IMDUR [Concomitant]
     Indication: HYPERTENSION
     Route: 065
  5. COZAAR [Concomitant]
     Indication: HYPERTENSION
     Route: 065
  6. DEMADEX [Concomitant]
     Indication: HYPERTENSION
     Route: 065
  7. PROSOM [Concomitant]
     Indication: SLEEP DISORDER
     Route: 065

REACTIONS (5)
  - ATHEROSCLEROSIS [None]
  - BLOOD CHOLESTEROL INCREASED [None]
  - CARDIAC FAILURE CONGESTIVE [None]
  - GASTROINTESTINAL HAEMORRHAGE [None]
  - MYOCARDIAL INFARCTION [None]
